FAERS Safety Report 8280058 (Version 33)
Quarter: 2013Q4

REPORT INFORMATION
  Report Type: Report from Study
  Country: CA (occurrence: CA)
  Receive Date: 20111208
  Receipt Date: 20131002
  Transmission Date: 20140711
  Serious: Yes (Other)
  Sender: FDA-Public Use
  Company Number: CA-ROCHE-1019409

PATIENT
  Age: 44 Year
  Sex: Male
  Weight: 94 kg

DRUGS (9)
  1. AVASTIN [Suspect]
     Indication: GLIOBLASTOMA
     Route: 042
     Dates: start: 20110610
  2. AVASTIN [Suspect]
     Route: 042
     Dates: start: 20111118
  3. AVASTIN [Suspect]
     Route: 042
     Dates: start: 20120405
  4. AVASTIN [Suspect]
     Route: 042
     Dates: start: 20130607
  5. AVASTIN [Suspect]
     Dosage: DOSE REDUCED.
     Route: 042
     Dates: start: 20130802
  6. AVASTIN [Suspect]
     Route: 042
     Dates: start: 20130912, end: 20130912
  7. CCNU [Suspect]
     Indication: GLIOBLASTOMA
     Route: 048
     Dates: end: 201105
  8. CCNU [Suspect]
     Route: 048
     Dates: start: 2013
  9. DILANTIN [Concomitant]
     Route: 065

REACTIONS (24)
  - Urine protein/creatinine ratio decreased [Recovered/Resolved]
  - Protein urine present [Unknown]
  - Protein urine present [Not Recovered/Not Resolved]
  - Haematuria [Unknown]
  - Renal impairment [Unknown]
  - Nephrotic syndrome [Unknown]
  - Disease progression [Not Recovered/Not Resolved]
  - Influenza [Recovered/Resolved]
  - Blood potassium increased [Unknown]
  - Weight increased [Not Recovered/Not Resolved]
  - Blood pressure diastolic increased [Unknown]
  - Blood pressure increased [Not Recovered/Not Resolved]
  - Nasopharyngitis [Recovering/Resolving]
  - Weight decreased [Unknown]
  - Platelet count decreased [Not Recovered/Not Resolved]
  - Fatigue [Recovered/Resolved]
  - Oral herpes [Recovered/Resolved]
  - Generalised oedema [Recovering/Resolving]
  - Proteinuria [Unknown]
  - Neurological symptom [Unknown]
  - Headache [Not Recovered/Not Resolved]
  - Vomiting [Unknown]
  - Somnolence [Unknown]
  - Fall [Unknown]
